FAERS Safety Report 6043173-X (Version None)
Quarter: 2009Q1

REPORT INFORMATION
  Report Type: 
  Country: None (occurrence: None)
  Receive Date: 20090119
  Receipt Date: 20090107
  Transmission Date: 20090719
  Serious: Yes (Hospitalization)
  Sender: FDA-Public Use
  Company Number: BE-ROCHE-603894

PATIENT
  Sex: Female

DRUGS (2)
  1. XELODA [Suspect]
     Indication: BREAST CANCER
     Route: 048
     Dates: start: 20081120, end: 20081201
  2. XELODA [Suspect]
     Dosage: RECHALLENGE, LOWERED DOSAGE, TWO WEEKS TREATMENT + ONE WEEK REST.
     Route: 048
     Dates: start: 20081201

REACTIONS (1)
  - HAEMOLYTIC ANAEMIA [None]
